FAERS Safety Report 10481791 (Version 1)
Quarter: 2014Q3

REPORT INFORMATION
  Report Type: Spontaneous
  Country: AU (occurrence: AU)
  Receive Date: 20140929
  Receipt Date: 20140929
  Transmission Date: 20150326
  Serious: Yes (Other)
  Sender: FDA-Public Use
  Company Number: AU-PFIZER INC-2014265397

PATIENT
  Sex: Female

DRUGS (1)
  1. LYRICA [Suspect]
     Active Substance: PREGABALIN
     Indication: NEURALGIA
     Dosage: 25 MG, ONCE NIGHT (ON)

REACTIONS (4)
  - Mental impairment [Unknown]
  - Confusional state [Unknown]
  - Disorientation [Unknown]
  - Judgement impaired [Unknown]
